FAERS Safety Report 9825684 (Version 3)
Quarter: 2014Q1

REPORT INFORMATION
  Report Type: Spontaneous
  Country: FR (occurrence: FR)
  Receive Date: 20140117
  Receipt Date: 20140220
  Transmission Date: 20141002
  Serious: Yes (Hospitalization, Other)
  Sender: FDA-Public Use
  Company Number: FR-ASTRAZENECA-2014SE02599

PATIENT
  Age: 28152 Day
  Sex: Male
  Weight: 92.6 kg

DRUGS (14)
  1. XEROQUEL [Suspect]
     Indication: ANXIETY DISORDER
     Route: 048
     Dates: start: 20131216
  2. XEROQUEL [Suspect]
     Indication: DEPRESSION
     Route: 048
     Dates: start: 20131216
  3. XEROQUEL [Suspect]
     Indication: ANXIETY DISORDER
     Route: 048
     Dates: end: 201401
  4. XEROQUEL [Suspect]
     Indication: DEPRESSION
     Route: 048
     Dates: end: 201401
  5. TEMESTA [Concomitant]
     Route: 048
  6. UVEDOSE [Concomitant]
     Dosage: ONE DF EVERY TWO MONTHS
     Route: 048
  7. COAPROVEL [Concomitant]
     Dosage: 150/2.5 MG ONE PER DAY
     Route: 048
  8. DAFALGAN CODEINE [Concomitant]
     Route: 048
  9. EUPANTOL [Concomitant]
     Route: 048
  10. ANAFRANIL [Concomitant]
     Route: 048
     Dates: start: 20120921
  11. AVLOCARDYL [Concomitant]
     Route: 048
  12. KARDEGIC [Concomitant]
     Route: 048
  13. VASTEN [Concomitant]
     Indication: HYPERCHOLESTEROLAEMIA
     Route: 048
  14. OMEXEL [Concomitant]
     Route: 048

REACTIONS (3)
  - Cerebral infarction [Recovering/Resolving]
  - Pneumonia aspiration [Unknown]
  - Mental disorder [Unknown]
